FAERS Safety Report 8610352 (Version 3)
Quarter: 2013Q1

REPORT INFORMATION
  Report Type: Spontaneous
  Country: US (occurrence: US)
  Receive Date: 20120612
  Receipt Date: 20130213
  Transmission Date: 20140127
  Serious: No
  Sender: FDA-Public Use
  Company Number: US-PFIZER INC-2012136689

PATIENT
  Age: 60 Year
  Sex: Male
  Weight: 92.9 kg

DRUGS (9)
  1. NARDIL [Suspect]
     Indication: ANXIETY
     Dosage: 15 MG, 5X/DAY
     Route: 048
  2. NARDIL [Suspect]
     Indication: PHOBIA
     Dosage: 15 MG, 4X/DAY
     Route: 048
  3. NARDIL [Suspect]
     Indication: FEAR
     Dosage: 15 MG, 3X/DAY
     Route: 048
  4. NARDIL [Suspect]
     Dosage: UNK
     Route: 048
  5. VALIUM [Concomitant]
     Dosage: 5 MG, 2X/DAY
  6. ZYPREXA [Concomitant]
     Dosage: 2.5 MG, UNK
  7. LITHIUM [Concomitant]
     Dosage: UNK
  8. DEPAKOTE [Concomitant]
     Dosage: UNK
  9. CYMBALTA [Concomitant]
     Dosage: UNK

REACTIONS (4)
  - Malaise [Unknown]
  - Mental disorder [Unknown]
  - Mania [Unknown]
  - Drug effect incomplete [Unknown]
